FAERS Safety Report 4426758-3 (Version None)
Quarter: 2004Q3

REPORT INFORMATION
  Report Type: 
  Country: None (occurrence: None)
  Receive Date: 20040816
  Receipt Date: 20040803
  Transmission Date: 20050211
  Serious: Yes (Hospitalization)
  Sender: FDA-Public Use
  Company Number: US-ROCHE-376719

PATIENT
  Age: 12 Month
  Sex: Male
  Weight: 11 kg

DRUGS (6)
  1. CYTOVENE IV [Suspect]
     Route: 042
     Dates: start: 20040718, end: 20040726
  2. SPIRONOLACTONE [Suspect]
     Indication: CARDIOMYOPATHY
     Route: 065
     Dates: start: 20040715
  3. SPIRONOLACTONE [Suspect]
     Route: 065
  4. LASIX [Suspect]
     Indication: CARDIOMYOPATHY
     Route: 065
     Dates: start: 20040715
  5. COREG [Concomitant]
     Indication: CARDIOMYOPATHY
  6. DIGITALIS [Concomitant]
     Indication: CARDIOMYOPATHY

REACTIONS (3)
  - DEHYDRATION [None]
  - DRUG INEFFECTIVE [None]
  - RENAL FAILURE [None]
